FAERS Safety Report 19306901 (Version 1)
Quarter: 2021Q2

REPORT INFORMATION
  Report Type: Spontaneous
  Country: BR (occurrence: BR)
  Receive Date: 20210526
  Receipt Date: 20210526
  Transmission Date: 20210717
  Serious: Yes (Hospitalization, Other)
  Sender: FDA-Public Use
  Company Number: NVSC2021BR111529

PATIENT
  Age: 67 Year
  Sex: Female
  Weight: 61 kg

DRUGS (14)
  1. PREDNISONE. [Concomitant]
     Active Substance: PREDNISONE
     Indication: PRODUCT USED FOR UNKNOWN INDICATION
     Dosage: 20 MG, Q12H (STARTED ON 19 APR, LAST DOSE RECEIVED ON 24 APR)
     Route: 065
  2. ROCEFIN [Concomitant]
     Active Substance: CEFTRIAXONE SODIUM
     Indication: PRODUCT USED FOR UNKNOWN INDICATION
     Dosage: UNK (STARTED ON 29 APR, LAST DOSE RECEIVED ON 09 MAY)
     Route: 065
  3. ATENOLOL. [Concomitant]
     Active Substance: ATENOLOL
     Indication: PRODUCT USED FOR UNKNOWN INDICATION
     Dosage: UNK (STARTED ON 29 APR, LAST DOSE RECEIVED ON 09 MAY)
     Route: 065
  4. VITAMIN D [Concomitant]
     Active Substance: VITAMIN D NOS
     Indication: PRODUCT USED FOR UNKNOWN INDICATION
     Dosage: UNK (STARTED ON 19 APR, LAST DOSE RECEIVED ON 24 APR)
     Route: 065
  5. LOSARTAN. [Concomitant]
     Active Substance: LOSARTAN
     Indication: PRODUCT USED FOR UNKNOWN INDICATION
     Dosage: UNK (STARTED ON 29 APR, LAST DOSE RECEIVED ON 09 MAY)
     Route: 065
  6. MIRTAZAPINE. [Concomitant]
     Active Substance: MIRTAZAPINE
     Indication: INSOMNIA
     Dosage: 15 MG (LAST DOSE RECEIVED ON 09 MAY)
     Route: 048
     Dates: start: 20210402
  7. ALPRAZOLAM. [Concomitant]
     Active Substance: ALPRAZOLAM
     Indication: PRODUCT USED FOR UNKNOWN INDICATION
     Dosage: UNK (STARTED ON 29 APR, LAST DOSE RECEIVED ON 09 MAY)
     Route: 065
  8. CEFEPIME [Concomitant]
     Active Substance: CEFEPIME HYDROCHLORIDE
     Indication: PRODUCT USED FOR UNKNOWN INDICATION
     Dosage: UNK (STARTED ON 03 MAY, LAST DOSE RECEIVED ON 09 MAY)
     Route: 065
  9. AZITROMYCINE [Suspect]
     Active Substance: AZITHROMYCIN
     Indication: PRODUCT USED FOR UNKNOWN INDICATION
     Dosage: 500 MG, QD (STARTED ON 19 APR, LAST DOSE RECEIVED ON 24 APR)
     Route: 065
  10. ZOFRAN [Concomitant]
     Active Substance: ONDANSETRON HYDROCHLORIDE
     Indication: PRODUCT USED FOR UNKNOWN INDICATION
     Dosage: UNK (STARTED ON 29 APR, LAST DOSE RECEIVED ON 09 MAY)
     Route: 065
  11. COLECALCIFEROL [Concomitant]
     Active Substance: CHOLECALCIFEROL
     Indication: PRODUCT USED FOR UNKNOWN INDICATION
     Dosage: UNK (STARTED ON 29 APR, LAST DOSE RECEIVED ON 09 MAY)
     Route: 065
  12. DECADRON [Concomitant]
     Active Substance: DEXAMETHASONE
     Indication: PRODUCT USED FOR UNKNOWN INDICATION
     Dosage: UNK (STARTED ON 29 APR, LAST DOSE RECEIVED ON 09 MAY)
     Route: 065
  13. FLUTAMIDE. [Concomitant]
     Active Substance: FLUTAMIDE
     Indication: PRODUCT USED FOR UNKNOWN INDICATION
     Dosage: UNK (STARTED ON 29 APR, LAST DOSE RECEIVED ON 09 MAY)
     Route: 065
  14. CLEXANE [Concomitant]
     Active Substance: ENOXAPARIN SODIUM
     Indication: PRODUCT USED FOR UNKNOWN INDICATION
     Dosage: UNK (STARTED ON 29 APR, LAST DOSE RECEIVED ON 09 MAY)
     Route: 065

REACTIONS (19)
  - Parosmia [Unknown]
  - Pyrexia [Unknown]
  - Cough [Unknown]
  - Eye pain [Unknown]
  - COVID-19 [Unknown]
  - Decreased appetite [Unknown]
  - Pain [Unknown]
  - Oropharyngeal pain [Unknown]
  - Taste disorder [Unknown]
  - Tachycardia [Unknown]
  - Dizziness [Unknown]
  - Somnolence [Unknown]
  - Back injury [Unknown]
  - Oxygen saturation decreased [Unknown]
  - Nausea [Unknown]
  - Respiratory distress [Unknown]
  - Nasal injury [Unknown]
  - Pyrexia [Unknown]
  - Fatigue [Unknown]

NARRATIVE: CASE EVENT DATE: 20210426
